FAERS Safety Report 24281489 (Version 1)
Quarter: 2024Q3

REPORT INFORMATION
  Report Type: Spontaneous
  Country: US (occurrence: None)
  Receive Date: 20240904
  Receipt Date: 20240904
  Transmission Date: 20241016
  Serious: Yes (unspecified)
  Sender: Public
  Company Number: None

PATIENT
  Age: 54 Year
  Sex: Female
  Weight: 85.5 kg

DRUGS (9)
  1. PAXLOVID [Suspect]
     Active Substance: NIRMATRELVIR\RITONAVIR
     Indication: COVID-19
     Dosage: OTHER QUANTITY : 10 TABLET(S);?FREQUENCY : TWICE A DAY;?
     Route: 048
     Dates: start: 20240903, end: 20240904
  2. ARMOUR THYROID [Concomitant]
     Active Substance: THYROID, PORCINE
  3. IRBESARTAN [Concomitant]
     Active Substance: IRBESARTAN
  4. PROTONIX [Concomitant]
     Active Substance: PANTOPRAZOLE SODIUM
  5. REPATHA [Concomitant]
     Active Substance: EVOLOCUMAB
  6. VITAMIN D [Concomitant]
     Active Substance: VITAMIN D NOS
  7. TYLENOL [Concomitant]
     Active Substance: ACETAMINOPHEN
  8. chlor-?ab [Concomitant]
  9. ANTIHISTAMINES NOS [Concomitant]
     Active Substance: ANTIHISTAMINES NOS

REACTIONS (4)
  - Dysgeusia [None]
  - Abdominal pain upper [None]
  - Cough [None]
  - Choking [None]

NARRATIVE: CASE EVENT DATE: 20240903
